FAERS Safety Report 6443909-X (Version None)
Quarter: 2009Q4

REPORT INFORMATION
  Report Type: 
  Country: None (occurrence: None)
  Receive Date: 20091113
  Receipt Date: 20091030
  Transmission Date: 20100525
  Serious: Yes (Other)
  Sender: FDA-Public Use
  Company Number: 08-001567

PATIENT
  Age: 56 Year
  Sex: Female

DRUGS (6)
  1. TACLONEX [Suspect]
     Indication: PSORIASIS
     Dosage: TOPICAL
     Route: 061
  2. HUMIRA [Suspect]
     Indication: PSORIASIS
     Dosage: 40 MG, SUBCUTANEOUS, 20 MG, ORAL
     Route: 058
     Dates: start: 20080128, end: 20080317
  3. HUMIRA [Suspect]
     Indication: PSORIASIS
     Dosage: 40 MG, SUBCUTANEOUS, 20 MG, ORAL
     Route: 058
     Dates: start: 20080515
  4. METHOTREXATE [Concomitant]
  5. ASPIRIN [Concomitant]
  6. RIFAMPICIN [Concomitant]

REACTIONS (1)
  - MALIGNANT MELANOMA [None]
